FAERS Safety Report 14535764 (Version 1)
Quarter: 2018Q1

REPORT INFORMATION
  Report Type: Spontaneous
  Country: US (occurrence: US)
  Receive Date: 20180214
  Receipt Date: 20180214
  Transmission Date: 20180509
  Serious: Yes (Other)
  Sender: FDA-Public Use
  Company Number: None

PATIENT
  Age: 66 Year
  Sex: Male
  Weight: 75 kg

DRUGS (5)
  1. PALONOSETRON. [Concomitant]
     Active Substance: PALONOSETRON HYDROCHLORIDE
  2. CISPLATIN. [Concomitant]
     Active Substance: CISPLATIN
  3. VARUBI [Suspect]
     Active Substance: ROLAPITANT
     Indication: VOMITING
     Dosage: ?          OTHER FREQUENCY:ONCE;?
     Route: 042
     Dates: start: 20171204, end: 20171204
  4. DEXAMETHASON [Concomitant]
     Active Substance: DEXAMETHASONE
  5. VARUBI [Suspect]
     Active Substance: ROLAPITANT
     Indication: TREATMENT FAILURE
     Dosage: ?          OTHER FREQUENCY:ONCE;?
     Route: 042
     Dates: start: 20171204, end: 20171204

REACTIONS (6)
  - Urticaria [None]
  - Pruritus [None]
  - Burning sensation [None]
  - Infusion related reaction [None]
  - Rash [None]
  - Chest discomfort [None]

NARRATIVE: CASE EVENT DATE: 20171204
